FAERS Safety Report 11812876 (Version 1)
Quarter: 2015Q4

REPORT INFORMATION
  Report Type: Report from Study
  Country: RU (occurrence: RU)
  Receive Date: 20151209
  Receipt Date: 20151209
  Transmission Date: 20160305
  Serious: Yes (Other)
  Sender: FDA-Public Use
  Company Number: RU-ROCHE-1659154

PATIENT
  Sex: Female

DRUGS (10)
  1. PHENAZEPAM [Suspect]
     Active Substance: PHENAZEPAM
     Indication: MENTAL DISORDER
     Route: 065
  2. VALOCORDIN [Suspect]
     Active Substance: BROMISOVAL\HOPS\PHENOBARBITAL
     Indication: MENTAL DISORDER
     Route: 065
  3. ALCOHOL. [Suspect]
     Active Substance: ALCOHOL
     Indication: PRODUCT USED FOR UNKNOWN INDICATION
     Route: 065
  4. NITRAZEPAM [Suspect]
     Active Substance: NITRAZEPAM
     Indication: MENTAL DISORDER
     Route: 065
  5. VALOSERDIN [Suspect]
     Active Substance: BROMISOVAL\ETHYL 2-BROMOISOVALERATE
     Indication: MENTAL DISORDER
     Route: 065
  6. ALPRAZOLAM. [Suspect]
     Active Substance: ALPRAZOLAM
     Indication: MENTAL DISORDER
     Route: 065
  7. CORVALOL [Suspect]
     Active Substance: BROMISOVAL\PHENOBARBITAL SODIUM
     Indication: MENTAL DISORDER
     Route: 065
  8. CLONAZEPAM. [Suspect]
     Active Substance: CLONAZEPAM
     Indication: MENTAL DISORDER
     Route: 065
  9. OXAZEPAM. [Suspect]
     Active Substance: OXAZEPAM
     Indication: MENTAL DISORDER
     Route: 065
  10. DIAZEPAM. [Suspect]
     Active Substance: DIAZEPAM
     Indication: MENTAL DISORDER
     Route: 065

REACTIONS (2)
  - Cardiac failure [Unknown]
  - Withdrawal syndrome [Unknown]
